FAERS Safety Report 21959510 (Version 1)
Quarter: 2023Q1

REPORT INFORMATION
  Report Type: Spontaneous
  Country: IT (occurrence: IT)
  Receive Date: 20230206
  Receipt Date: 20230206
  Transmission Date: 20230418
  Serious: Yes (Other)
  Sender: FDA-Public Use
  Company Number: None

PATIENT
  Age: 80 Year
  Sex: Female

DRUGS (4)
  1. ATORVASTATIN [Suspect]
     Active Substance: ATORVASTATIN
     Indication: Hypercholesterolaemia
     Dosage: 80 MILLIGRAM
     Route: 065
     Dates: start: 20220519, end: 20221028
  2. ASPIRIN [Suspect]
     Active Substance: ASPIRIN
     Indication: Myocardial ischaemia
     Dosage: 100 MILLIGRAM, QD
     Route: 065
     Dates: start: 20220519, end: 20221028
  3. TICAGRELOR [Suspect]
     Active Substance: TICAGRELOR
     Indication: Coronary angioplasty
     Dosage: 90 MILLIGRAM, BID, BRILIQUE 90 1CX2
     Route: 065
     Dates: start: 20220519, end: 20221028
  4. TICAGRELOR [Suspect]
     Active Substance: TICAGRELOR
     Indication: Acute coronary syndrome

REACTIONS (2)
  - Toxic skin eruption [Recovering/Resolving]
  - Urticaria [Recovering/Resolving]

NARRATIVE: CASE EVENT DATE: 20220601
